FAERS Safety Report 23953003 (Version 1)
Quarter: 2024Q2

REPORT INFORMATION
  Report Type: Spontaneous
  Country: CR (occurrence: CR)
  Receive Date: 20240608
  Receipt Date: 20240608
  Transmission Date: 20240716
  Serious: Yes (Hospitalization)
  Sender: FDA-Public Use
  Company Number: CR-PFIZER INC-202400185586

PATIENT
  Age: 31 Year
  Sex: Female

DRUGS (1)
  1. ENBREL [Suspect]
     Active Substance: BENZYL ALCOHOL\ETANERCEPT
     Indication: Ankylosing spondylitis
     Dosage: 50 MILLIGRAM, QWK (50 MG, WEEKLY)
     Route: 058
     Dates: start: 20230829, end: 20240523

REACTIONS (10)
  - Bursitis [Not Recovered/Not Resolved]
  - Rotator cuff syndrome [Not Recovered/Not Resolved]
  - Tendon disorder [Not Recovered/Not Resolved]
  - Tendon calcification [Not Recovered/Not Resolved]
  - Tendon injury [Not Recovered/Not Resolved]
  - Intervertebral disc disorder [Unknown]
  - Enthesopathy [Not Recovered/Not Resolved]
  - Osteosclerosis [Not Recovered/Not Resolved]
  - Greater trochanteric pain syndrome [Not Recovered/Not Resolved]
  - Joint stiffness [Not Recovered/Not Resolved]

NARRATIVE: CASE EVENT DATE: 20240310
